FAERS Safety Report 22658500 (Version 1)
Quarter: 2023Q2

REPORT INFORMATION
  Report Type: Spontaneous
  Country: US (occurrence: US)
  Receive Date: 20230630
  Receipt Date: 20230630
  Transmission Date: 20230721
  Serious: Yes (Hospitalization, Other)
  Sender: FDA-Public Use
  Company Number: US-BAYER-2023A090945

PATIENT
  Age: 24 Year
  Sex: Male

DRUGS (1)
  1. KOVALTRY [Suspect]
     Active Substance: ANTIHEMOPHILIC FACTOR, HUMAN RECOMBINANT
     Dosage: 2220 IU 220 UNITS EVERY 24 HOURS AS DIRECTED  FOR BREAKTHROUGH BLEEDING EVENTS.

REACTIONS (1)
  - Eye injury [None]

NARRATIVE: CASE EVENT DATE: 20230326
